FAERS Safety Report 5148570-2 (Version None)
Quarter: 2006Q4

REPORT INFORMATION
  Report Type: 
  Country: None (occurrence: None)
  Receive Date: 20061106
  Receipt Date: 20060921
  Transmission Date: 20070319
  Serious: Yes (Life-Threatening, Hospitalization)
  Sender: FDA-Public Use
  Company Number: 2006001836

PATIENT
  Age: 74 Year
  Sex: Male

DRUGS (9)
  1. ERLOTINIB  (TABLET) [Suspect]
     Indication: PANCREATIC CARCINOMA
     Dosage: 100 MG (QD), ORAL
     Route: 048
     Dates: start: 20060808, end: 20060824
  2. GEMCITABINE [Suspect]
     Indication: PANCREATIC CARCINOMA
     Dosage: 2000 MG, INJECTION
     Dates: start: 20060808, end: 20060824
  3. BEVACIZUMAB (INJECTION FOR INFUSION) [Suspect]
     Indication: PANCREATIC CARCINOMA
     Dosage: 410 MG (Q 2 WEEKS), INTRAVENOUS
     Route: 042
     Dates: start: 20060808, end: 20060822
  4. CAPECITABINE (CAPECITABINE) (TABLET) [Suspect]
     Indication: PANCREATIC CARCINOMA
     Dosage: 1800 MG, ORAL
     Route: 048
     Dates: start: 20060808, end: 20060822
  5. METOCLOPRAMIDE [Concomitant]
  6. LANSOPRAZOLE [Concomitant]
  7. CHLORPROMAZINE [Concomitant]
  8. BENDROFLUAZIDE (BENDROFLUMETHIAZIDE) [Concomitant]
  9. CREAM NOS [Concomitant]

REACTIONS (23)
  - ASCITES [None]
  - BACTERIAL INFECTION [None]
  - BILIARY SEPSIS [None]
  - BLOOD CULTURE POSITIVE [None]
  - CANDIDIASIS [None]
  - CARDIOVASCULAR DISORDER [None]
  - CENTRAL LINE INFECTION [None]
  - DIARRHOEA [None]
  - EPISTAXIS [None]
  - FLUID OVERLOAD [None]
  - HAEMATEMESIS [None]
  - HYPERBILIRUBINAEMIA [None]
  - HYPERPYREXIA [None]
  - HYPERTENSION [None]
  - LETHARGY [None]
  - LOWER RESPIRATORY TRACT INFECTION [None]
  - MUCOSAL INFLAMMATION [None]
  - PSEUDOMONAS INFECTION [None]
  - RESPIRATORY FAILURE [None]
  - SPUTUM CULTURE POSITIVE [None]
  - STAPHYLOCOCCAL INFECTION [None]
  - URINARY RETENTION [None]
  - URINE OUTPUT DECREASED [None]
